FAERS Safety Report 8998363 (Version 1)
Quarter: 2013Q1

REPORT INFORMATION
  Report Type: Spontaneous
  Country: US (occurrence: US)
  Receive Date: 20130105
  Receipt Date: 20130105
  Transmission Date: 20140127
  Serious: No
  Sender: FDA-Public Use
  Company Number: US-JNJFOC-20121213494

PATIENT
  Age: 45 Year
  Sex: Female

DRUGS (2)
  1. INVEGA [Suspect]
     Indication: PRODUCT USED FOR UNKNOWN INDICATION
     Dosage: STARTED OVER ONE YEAR BEFORE THIS REPORT
     Route: 048
  2. TRILEPTAL [Suspect]
     Indication: PRODUCT USED FOR UNKNOWN INDICATION
     Dosage: STARTED 6 MONTHS BEFORE THIS REPORT
     Route: 065
     Dates: start: 2012

REACTIONS (1)
  - Alopecia [Not Recovered/Not Resolved]
